FAERS Safety Report 23651681 (Version 1)
Quarter: 2024Q1

REPORT INFORMATION
  Report Type: Spontaneous
  Country: BR (occurrence: BR)
  Receive Date: 20240320
  Receipt Date: 20240320
  Transmission Date: 20240410
  Serious: Yes (Other)
  Sender: FDA-Public Use
  Company Number: BR-IPCA LABORATORIES LIMITED-IPC-2024-BR-000685

PATIENT

DRUGS (1)
  1. WARFARIN SODIUM [Suspect]
     Active Substance: WARFARIN SODIUM
     Indication: Suicide attempt
     Dosage: UNK
     Route: 065

REACTIONS (5)
  - Suicide attempt [Unknown]
  - Toxicity to various agents [Unknown]
  - Mouth haemorrhage [Unknown]
  - Haematuria [Unknown]
  - Haematoma [Unknown]
